FAERS Safety Report 6760518-3 (Version None)
Quarter: 2010Q2

REPORT INFORMATION
  Report Type: 
  Country: None (occurrence: None)
  Receive Date: 20100608
  Receipt Date: 20100603
  Transmission Date: 20101027
  Serious: Yes (Hospitalization)
  Sender: FDA-Public Use
  Company Number: FR-WYE-G05782710

PATIENT
  Sex: Male

DRUGS (1)
  1. RAPAMUNE [Suspect]
     Indication: PROPHYLAXIS AGAINST TRANSPLANT REJECTION
     Dosage: 3 MG TOTAL DAILY, THEN PROGRESSIVELY REDUCED TO 2 MG, THEN TO 1 MG AND THEN TO 0.5 MG (TOTAL DAILY)
     Route: 048
     Dates: start: 20091101, end: 20100218

REACTIONS (4)
  - ALVEOLITIS ALLERGIC [None]
  - DYSPEPSIA [None]
  - IMMUNOSUPPRESSANT DRUG LEVEL INCREASED [None]
  - MYALGIA [None]
